FAERS Safety Report 9842117 (Version 1)
Quarter: 2013Q4

REPORT INFORMATION
  Report Type: Spontaneous
  Country: US (occurrence: None)
  Receive Date: 20131219
  Receipt Date: 20131219
  Transmission Date: 20140711
  Serious: Yes (Hospitalization)
  Sender: FDA-Public Use
  Company Number: 163-20785-13061151

PATIENT
  Age: 79 Year
  Sex: Female

DRUGS (9)
  1. THALOMID (THALIDOMIDE) (50 MILLIGRAM, CAPSULES) [Suspect]
     Indication: ARTERIOVENOUS MALFORMATION
     Dosage: 50 MG, 28 IN 28 D, PO
     Route: 048
     Dates: start: 20130520
  2. B12-ACTIVE (CYANOCOBALAMIN) (UNKNOWN) [Concomitant]
  3. FUROSEMIDE (FUROSEMIDE) (UNKNOWN) [Concomitant]
  4. LISINOPRIL (LISINOPRIL) (UNKNOWN) [Concomitant]
  5. METFORMIN HCL (METFORMIN HYDROCHLORIDE) (UNKNOWN) [Concomitant]
  6. METOPROLOL TARTRATE (METOPROLOL TARTRATE) (UNKNOWN) [Concomitant]
  7. PANTOPRAZOLE SODIUM (PANTOPRAZOLE SODIUM) (UNKNOWN)? [Concomitant]
  8. POTASSIUM (POTASSIUM) (UNKNOWN) [Concomitant]
  9. VITAMIN C (ASCORBIC ACID) (UNKNOWN) [Concomitant]

REACTIONS (1)
  - Postoperative wound infection [None]
